FAERS Safety Report 7728643-8 (Version None)
Quarter: 2011Q3

REPORT INFORMATION
  Report Type: 
  Country: None (occurrence: None)
  Receive Date: 20110831
  Receipt Date: 20110831
  Transmission Date: 20111222
  Serious: Yes (Life-Threatening, Hospitalization)
  Sender: FDA-Public Use
  Company Number: None

PATIENT
  Age: 76 Year
  Sex: Male
  Weight: 57.8 kg

DRUGS (1)
  1. HEPARIN [Suspect]
     Indication: CORONARY ARTERIAL STENT INSERTION
     Dosage: 1000 UNITS PER HOUR IV
     Route: 042
     Dates: start: 20110804, end: 20110806

REACTIONS (2)
  - THROMBOCYTOPENIA [None]
  - HEPARIN-INDUCED THROMBOCYTOPENIA [None]
